FAERS Safety Report 13515917 (Version 8)
Quarter: 2022Q1

REPORT INFORMATION
  Report Type: Other
  Country: US (occurrence: None)
  Receive Date: 20170505
  Receipt Date: 20220328
  Transmission Date: 20220423
  Serious: Yes (Other)
  Sender: FDA-Public Use
  Company Number: US-ROCHE-1930183

PATIENT

DRUGS (5)
  1. RITUXIMAB [Suspect]
     Active Substance: RITUXIMAB
     Indication: Chronic lymphocytic leukaemia
     Dosage: ON DAY 1 OF CYCLE 1
     Route: 065
  2. RITUXIMAB [Suspect]
     Active Substance: RITUXIMAB
     Dosage: ON DAY 1 OF CYCLES 2- 6
     Route: 065
  3. IBRUTINIB [Suspect]
     Active Substance: IBRUTINIB
     Indication: Chronic lymphocytic leukaemia
     Dosage: UP TO 6 CYCLES
     Route: 065
  4. FLUDARABINE [Suspect]
     Active Substance: FLUDARABINE PHOSPHATE
     Indication: Chronic lymphocytic leukaemia
     Route: 065
  5. CYCLOPHOSPHAMIDE [Suspect]
     Active Substance: CYCLOPHOSPHAMIDE
     Indication: Chronic lymphocytic leukaemia
     Route: 065

REACTIONS (54)
  - Febrile neutropenia [Unknown]
  - Neutropenia [Unknown]
  - Atrial fibrillation [Unknown]
  - Transaminases increased [Unknown]
  - Thrombocytopenia [Unknown]
  - Anaemia [Unknown]
  - Pneumonia [Unknown]
  - Appendicitis [Unknown]
  - Infusion related reaction [Unknown]
  - Pharyngitis [Unknown]
  - Infection [Unknown]
  - Lymphopenia [Unknown]
  - Leukopenia [Unknown]
  - Anaemia [Unknown]
  - Hepatic enzyme increased [Unknown]
  - Leukocytosis [Unknown]
  - Nausea [Unknown]
  - Hyperglycaemia [Unknown]
  - Diarrhoea [Unknown]
  - Aspartate aminotransferase increased [Unknown]
  - Hyponatraemia [Unknown]
  - Alanine aminotransferase increased [Unknown]
  - Upper respiratory tract infection [Unknown]
  - Vomiting [Unknown]
  - Hyperkalaemia [Unknown]
  - Blood bilirubin increased [Unknown]
  - Hypokalaemia [Unknown]
  - Hypophosphataemia [Unknown]
  - Hypoglycaemia [Unknown]
  - Pneumonia [Unknown]
  - Rash maculo-papular [Unknown]
  - Pruritus [Unknown]
  - Abdominal pain [Unknown]
  - Hypertension [Unknown]
  - Depression [Unknown]
  - Infusion related reaction [Unknown]
  - Skin infection [Unknown]
  - Syncope [Unknown]
  - Urinary tract infection [Unknown]
  - Dehydration [Unknown]
  - Rash pustular [Unknown]
  - Cholecystitis [Unknown]
  - Lipase increased [Unknown]
  - Pneumonitis [Unknown]
  - Sleep apnoea syndrome [Unknown]
  - Arthritis [Unknown]
  - Gallbladder obstruction [Unknown]
  - Pneumocystis jirovecii pneumonia [Unknown]
  - Human anaplasmosis [Unknown]
  - Pneumatosis intestinalis [Unknown]
  - Lipase increased [Unknown]
  - Cellulitis [Unknown]
  - Appendiceal mucocoele [Unknown]
  - Respiratory syncytial virus infection [Unknown]
